FAERS Safety Report 10173747 (Version 2)
Quarter: 2014Q2

REPORT INFORMATION
  Report Type: Spontaneous
  Country: US (occurrence: US)
  Receive Date: 20140515
  Receipt Date: 20140627
  Transmission Date: 20141212
  Serious: Yes (Hospitalization, Other)
  Sender: FDA-Public Use
  Company Number: US-ASTRAZENECA-2014SE31863

PATIENT
  Age: 75 Year
  Sex: Female
  Weight: 46.3 kg

DRUGS (12)
  1. SYMBICORT [Suspect]
     Indication: CHRONIC OBSTRUCTIVE PULMONARY DISEASE
     Dosage: 80/4.5 MCG, 2 PUFFS BID
     Route: 055
     Dates: start: 2012, end: 20140429
  2. NEXIUM [Suspect]
     Indication: GASTROOESOPHAGEAL REFLUX DISEASE
     Route: 048
     Dates: start: 2004
  3. NEXIUM [Suspect]
     Indication: HIATUS HERNIA
     Route: 048
     Dates: start: 2004
  4. NEXIUM [Suspect]
     Indication: GASTROOESOPHAGEAL REFLUX DISEASE
     Route: 048
     Dates: start: 2004
  5. LISINOPRIL [Suspect]
     Indication: BLOOD PRESSURE ABNORMAL
     Route: 048
     Dates: start: 2010, end: 2010
  6. CRESTOR [Suspect]
     Indication: BLOOD CHOLESTEROL ABNORMAL
     Route: 048
     Dates: start: 2013
  7. TRAMADOL [Concomitant]
     Indication: PAIN
     Dosage: 37.5-325 MG Q6H
     Route: 048
  8. FUROSEMIDE [Concomitant]
     Indication: MITRAL VALVE PROLAPSE
     Route: 048
     Dates: start: 2011
  9. SERTRALINE [Concomitant]
     Indication: NERVOUS SYSTEM DISORDER
     Route: 048
  10. PLETAL [Concomitant]
     Indication: ARTERIAL DISORDER
     Route: 048
     Dates: start: 2012
  11. PLAVIX [Concomitant]
     Indication: CARDIAC DISORDER
     Route: 048
  12. DIGOXIN [Concomitant]
     Route: 048

REACTIONS (17)
  - Pain in extremity [Not Recovered/Not Resolved]
  - Dyspnoea [Unknown]
  - Dysphagia [Recovered/Resolved]
  - Anaemia [Recovered/Resolved]
  - Irritability [Unknown]
  - Choking sensation [Unknown]
  - Body height decreased [Not Recovered/Not Resolved]
  - Vitamin D deficiency [Unknown]
  - Abdominal pain upper [Not Recovered/Not Resolved]
  - Visual impairment [Recovered/Resolved]
  - Lacrimation increased [Recovered/Resolved]
  - Drug hypersensitivity [Unknown]
  - Malaise [Unknown]
  - Drug dose omission [Unknown]
  - Device misuse [Unknown]
  - Off label use [Not Recovered/Not Resolved]
  - Off label use [Unknown]
